FAERS Safety Report 23610932 (Version 5)
Quarter: 2024Q2

REPORT INFORMATION
  Report Type: Spontaneous
  Country: JP (occurrence: JP)
  Receive Date: 20240308
  Receipt Date: 20240428
  Transmission Date: 20240715
  Serious: Yes (Life-Threatening, Hospitalization, Other)
  Sender: FDA-Public Use
  Company Number: JP-MSD-2403JPN000504J

PATIENT
  Age: 59 Year
  Sex: Male
  Weight: 79 kg

DRUGS (12)
  1. LAGEVRIO [Suspect]
     Active Substance: MOLNUPIRAVIR
     Indication: COVID-19 treatment
     Dosage: 800 MILLIGRAM, QD, EVENING
     Route: 048
     Dates: start: 20240211, end: 20240211
  2. LAGEVRIO [Suspect]
     Active Substance: MOLNUPIRAVIR
     Dosage: 800 MILLIGRAM, BID
     Route: 048
     Dates: start: 20240212, end: 20240215
  3. LAGEVRIO [Suspect]
     Active Substance: MOLNUPIRAVIR
     Dosage: 800 MILLIGRAM, QD, MORNING
     Route: 048
     Dates: start: 20240216, end: 20240216
  4. BELSOMRA [Concomitant]
     Active Substance: SUVOREXANT
     Indication: Schizophrenia
     Dosage: 20 MILLIGRAM, QD
     Route: 048
     Dates: start: 20220705
  5. ALPRAZOLAM [Concomitant]
     Active Substance: ALPRAZOLAM
     Indication: Schizophrenia
     Dosage: 0.8 MILLIGRAM, TID
     Route: 048
     Dates: start: 20220705
  6. NITRAZEPAM [Concomitant]
     Active Substance: NITRAZEPAM
     Indication: Schizophrenia
     Dosage: 5 MILLIGRAM, QD
     Route: 048
     Dates: start: 20220705
  7. EPERISONE HYDROCHLORIDE [Concomitant]
     Active Substance: EPERISONE HYDROCHLORIDE
     Indication: Schizophrenia
     Dosage: 50 MILLIGRAM, TID
     Route: 048
     Dates: start: 20220705
  8. METHYLCOBALAMIN [Concomitant]
     Active Substance: METHYLCOBALAMIN
     Indication: Schizophrenia
     Dosage: 500 MICROGRAM, TID
     Route: 048
     Dates: start: 20220705
  9. REBAMIPIDE [Concomitant]
     Active Substance: REBAMIPIDE
     Indication: Schizophrenia
     Dosage: 100 MILLIGRAM, TID
     Route: 048
     Dates: start: 20220705
  10. MAGNESIUM OXIDE [Concomitant]
     Active Substance: MAGNESIUM OXIDE
     Indication: Schizophrenia
     Dosage: 500 MILLIGRAM, BID
     Route: 048
     Dates: start: 20220705
  11. OLANZAPINE [Concomitant]
     Active Substance: OLANZAPINE
     Indication: Schizophrenia
     Dosage: 10 MILLIGRAM, BID
     Route: 048
     Dates: start: 20230216
  12. ACETAMINOPHEN [Concomitant]
     Active Substance: ACETAMINOPHEN
     Dosage: UNK
     Route: 048
     Dates: start: 20240212, end: 20240213

REACTIONS (5)
  - Postrenal failure [Recovered/Resolved]
  - Urinary retention [Recovered/Resolved]
  - Rhabdomyolysis [Recovered/Resolved]
  - Hyponatraemia [Recovered/Resolved]
  - Hypoxia [Recovered/Resolved]

NARRATIVE: CASE EVENT DATE: 20240213
